FAERS Safety Report 10896623 (Version 1)
Quarter: 2015Q1

REPORT INFORMATION
  Report Type: Report from Study
  Country: AU (occurrence: None)
  Receive Date: 20150302
  Receipt Date: 20150302
  Transmission Date: 20150721
  Serious: Yes (Other)
  Sender: FDA-Public Use
  Company Number: 2015-10775

PATIENT
  Age: 82 Year
  Sex: Female

DRUGS (1)
  1. EYLEA [Suspect]
     Active Substance: AFLIBERCEPT
     Indication: NEOVASCULAR AGE-RELATED MACULAR DEGENERATION
     Dates: start: 20150211, end: 20150211

REACTIONS (4)
  - Eyelid oedema [None]
  - Retinal oedema [None]
  - Vitreous floaters [None]
  - Eye pain [None]

NARRATIVE: CASE EVENT DATE: 20150211
